FAERS Safety Report 16382811 (Version 9)
Quarter: 2020Q2

REPORT INFORMATION
  Report Type: Report from Study
  Country: None (occurrence: JP)
  Receive Date: 20190603
  Receipt Date: 20200601
  Transmission Date: 20200713
  Serious: Yes (Hospitalization)
  Sender: FDA-Public Use
  Company Number: JP-ABBVIE-19S-087-2785090-00

PATIENT
  Age: 48 Year
  Sex: Female
  Weight: 43 kg

DRUGS (32)
  1. RAMELTEON [Concomitant]
     Active Substance: RAMELTEON
     Indication: PRODUCT USED FOR UNKNOWN INDICATION
     Route: 048
     Dates: end: 20190411
  2. DOMPERIDONE [Concomitant]
     Active Substance: DOMPERIDONE
     Indication: PRODUCT USED FOR UNKNOWN INDICATION
     Route: 048
  3. FAMOTIDINE. [Concomitant]
     Active Substance: FAMOTIDINE
     Indication: PROPHYLAXIS
     Route: 042
     Dates: start: 20190410, end: 20190412
  4. METOCLOPRAMIDE HYDROCHLORIDE. [Concomitant]
     Active Substance: METOCLOPRAMIDE HYDROCHLORIDE
     Indication: PRODUCT USED FOR UNKNOWN INDICATION
     Route: 042
     Dates: start: 20190529, end: 20190530
  5. DUODOPA [Suspect]
     Active Substance: CARBIDOPA\LEVODOPA
     Indication: PARKINSON^S DISEASE
     Dosage: MD: 4 ML; CD: 4.2 ML/HR X 16 HRS; ED: 1.0 ML/UNIT X 1
     Route: 050
     Dates: start: 20190320, end: 20190322
  6. LEVODOPA [Concomitant]
     Active Substance: LEVODOPA
     Indication: PARKINSON^S DISEASE
     Route: 042
     Dates: start: 20190410, end: 20190412
  7. LEVODOPA [Concomitant]
     Active Substance: LEVODOPA
     Route: 042
     Dates: start: 20190529, end: 20190530
  8. DUODOPA [Suspect]
     Active Substance: CARBIDOPA\LEVODOPA
     Dosage: MD: 4 ML, CD: 4.0 ML/HR X 16 HOURS, ED: 1.5 ML/UNIT X 1
     Route: 050
     Dates: start: 20190327, end: 20190410
  9. DUODOPA [Suspect]
     Active Substance: CARBIDOPA\LEVODOPA
     Dosage: MD: 7 ML, CD: 4.0 ML/HR X 16 HOURS, ED: 1.5 ML/UNIT X 1
     Route: 050
     Dates: start: 20190412, end: 20190423
  10. ROTIGOTINE [Concomitant]
     Active Substance: ROTIGOTINE
     Indication: PARKINSON^S DISEASE
     Route: 062
     Dates: start: 20190318, end: 20190327
  11. PENTAZOCINE [Concomitant]
     Active Substance: PENTAZOCINE
     Indication: PROPHYLAXIS
     Route: 042
     Dates: start: 20190410, end: 20190410
  12. MAGNESIUM OXIDE. [Concomitant]
     Active Substance: MAGNESIUM OXIDE
     Indication: PRODUCT USED FOR UNKNOWN INDICATION
     Route: 048
  13. SUVOREXANT. [Concomitant]
     Active Substance: SUVOREXANT
     Indication: PRODUCT USED FOR UNKNOWN INDICATION
     Route: 048
     Dates: start: 20190412, end: 20190412
  14. TEPRENONE [Concomitant]
     Active Substance: TEPRENONE
     Indication: PRODUCT USED FOR UNKNOWN INDICATION
     Route: 048
     Dates: start: 20190430, end: 20190531
  15. LIDOCAINE. [Concomitant]
     Active Substance: LIDOCAINE
     Indication: PROPHYLAXIS
     Route: 042
     Dates: start: 20190410, end: 20190410
  16. CEFAZOLIN SODIUM. [Concomitant]
     Active Substance: CEFAZOLIN SODIUM
     Indication: PROPHYLAXIS
     Route: 042
     Dates: start: 20190410, end: 20190411
  17. DUODOPA [Suspect]
     Active Substance: CARBIDOPA\LEVODOPA
     Dosage: MD: 7 ML, CD: 3.9 ML/HR X 16 HOURS, ED: 1.5 ML/UNIT X 1
     Route: 050
     Dates: start: 20190424
  18. POLAPREZINC [Concomitant]
     Active Substance: POLAPREZINC
     Indication: PRODUCT USED FOR UNKNOWN INDICATION
     Route: 048
  19. MECOBALAMIN [Concomitant]
     Active Substance: METHYLCOBALAMIN
     Indication: PRODUCT USED FOR UNKNOWN INDICATION
     Route: 048
  20. LUBIPROSTONE [Concomitant]
     Active Substance: LUBIPROSTONE
     Indication: PRODUCT USED FOR UNKNOWN INDICATION
     Route: 048
  21. FLURBIPROFEN AXETIL [Concomitant]
     Active Substance: FLURBIPROFEN AXETIL
     Indication: PRODUCT USED FOR UNKNOWN INDICATION
     Route: 042
     Dates: start: 20190410, end: 20190411
  22. FLURBIPROFEN AXETIL [Concomitant]
     Active Substance: FLURBIPROFEN AXETIL
     Route: 042
     Dates: start: 20190529, end: 20190529
  23. SOLIFENACIN SUCCINATE. [Concomitant]
     Active Substance: SOLIFENACIN SUCCINATE
     Indication: PRODUCT USED FOR UNKNOWN INDICATION
     Route: 048
  24. LOXOPROFEN SODIUM HYDRATE [Concomitant]
     Active Substance: LOXOPROFEN SODIUM DIHYDRATE
     Indication: PRODUCT USED FOR UNKNOWN INDICATION
     Route: 048
     Dates: start: 20190321, end: 20190417
  25. TRIAMCINOLONE ACETONIDE. [Concomitant]
     Active Substance: TRIAMCINOLONE ACETONIDE
     Indication: PRODUCT USED FOR UNKNOWN INDICATION
     Dosage: TRACE AMOUNT; 1 TO 2 TIMES
     Route: 002
     Dates: start: 20190419
  26. BETAMETHASONE VALERATE. [Concomitant]
     Active Substance: BETAMETHASONE VALERATE
     Indication: PRODUCT USED FOR UNKNOWN INDICATION
     Dosage: TRACE AMOUNT
     Route: 061
  27. DICLOFENAC SODIUM. [Concomitant]
     Active Substance: DICLOFENAC SODIUM
     Indication: PRODUCT USED FOR UNKNOWN INDICATION
     Route: 054
     Dates: start: 20190601, end: 20190601
  28. MINODRONIC ACID HYDRATE [Concomitant]
     Active Substance: MINODRONIC ACID
     Indication: PRODUCT USED FOR UNKNOWN INDICATION
     Route: 048
     Dates: start: 20190611
  29. FLURBIPROFEN AXETIL [Concomitant]
     Active Substance: FLURBIPROFEN AXETIL
     Route: 042
     Dates: start: 20190530, end: 20190530
  30. DUODOPA [Suspect]
     Active Substance: CARBIDOPA\LEVODOPA
     Dosage: MD: 4 ML, CD: 4.0 ML/HR X 16 HOURS, ED: 1.0 ML/UNIT X 1
     Route: 050
     Dates: start: 20190323, end: 20190326
  31. FLUNITRAZEPAM [Concomitant]
     Active Substance: FLUNITRAZEPAM
     Indication: PROPHYLAXIS
     Route: 042
     Dates: start: 20190529, end: 20190529
  32. CEFMETAZOLE SODIUM [Concomitant]
     Active Substance: CEFMETAZOLE SODIUM
     Indication: PROPHYLAXIS
     Route: 042
     Dates: start: 20190529, end: 20190529

REACTIONS (22)
  - Back pain [Recovered/Resolved]
  - Blood pressure increased [Recovered/Resolved]
  - Procedural pain [Recovered/Resolved]
  - Stoma site extravasation [Unknown]
  - Device colour issue [Unknown]
  - Dyskinesia [Recovering/Resolving]
  - Stoma site pain [Not Recovered/Not Resolved]
  - Stoma site erythema [Unknown]
  - Stoma site inflammation [Not Recovered/Not Resolved]
  - Herpes zoster [Unknown]
  - Ovarian disorder [Not Recovered/Not Resolved]
  - Rash [Recovered/Resolved]
  - Bezoar [Recovered/Resolved]
  - Rhinalgia [Recovered/Resolved]
  - Stomatitis [Recovering/Resolving]
  - Stoma site hypergranulation [Unknown]
  - Anxiety [Unknown]
  - Stoma site haemorrhage [Unknown]
  - Insomnia [Unknown]
  - Hypersensitivity [Unknown]
  - Procedural pain [Recovered/Resolved]
  - Stoma site discharge [Not Recovered/Not Resolved]

NARRATIVE: CASE EVENT DATE: 2019
